FAERS Safety Report 7457362-0 (Version None)
Quarter: 2011Q2

REPORT INFORMATION
  Report Type: 
  Country: None (occurrence: None)
  Receive Date: 20110504
  Receipt Date: 20110419
  Transmission Date: 20111010
  Serious: No
  Sender: FDA-Public Use
  Company Number: US-B.I. PHARMACEUTICALS,INC./RIDGEFIELD-2011-BP-02415BP

PATIENT
  Sex: Female

DRUGS (10)
  1. COMBIVENT [Suspect]
     Indication: CHRONIC OBSTRUCTIVE PULMONARY DISEASE
     Route: 055
     Dates: start: 20070101
  2. FLECAINIDE ACETATE [Concomitant]
  3. COMBIVENT [Suspect]
     Indication: LUNG NEOPLASM MALIGNANT
  4. QVAR 40 [Concomitant]
  5. BYSTOLIC [Concomitant]
  6. GLIPIZIDE [Concomitant]
  7. SIMVASTATIN [Concomitant]
  8. ZYRTEC [Concomitant]
  9. SYMBICORT [Concomitant]
  10. DIAZEPAM [Concomitant]

REACTIONS (1)
  - DRUG INEFFECTIVE [None]
